FAERS Safety Report 11427804 (Version 1)
Quarter: 2015Q3

REPORT INFORMATION
  Report Type: Spontaneous
  Country: US (occurrence: None)
  Receive Date: 20150827
  Receipt Date: 20150827
  Transmission Date: 20151125
  Serious: Yes (Hospitalization, Other)
  Sender: FDA-Public Use
  Company Number: None

PATIENT
  Age: 83 Year
  Sex: Male
  Weight: 89.6 kg

DRUGS (1)
  1. ERTAPENEM [Suspect]
     Active Substance: ERTAPENEM
     Indication: OSTEOMYELITIS
     Route: 042
     Dates: start: 20150724

REACTIONS (5)
  - Agitation [None]
  - Mental status changes [None]
  - Confusional state [None]
  - Hallucination [None]
  - Chronic kidney disease [None]

NARRATIVE: CASE EVENT DATE: 20150731
